FAERS Safety Report 19865439 (Version 7)
Quarter: 2022Q1

REPORT INFORMATION
  Report Type: Report from Study
  Country: KR (occurrence: KR)
  Receive Date: 20210921
  Receipt Date: 20220126
  Transmission Date: 20220423
  Serious: Yes (Other)
  Sender: FDA-Public Use
  Company Number: KR-AMGEN-KORNI2021142322

PATIENT
  Sex: Male
  Weight: 61.5 kg

DRUGS (20)
  1. CARFILZOMIB [Suspect]
     Active Substance: CARFILZOMIB
     Indication: Plasma cell myeloma
     Dosage: 46 MILLIGRAM
     Route: 042
     Dates: start: 20201208
  2. CARFILZOMIB [Suspect]
     Active Substance: CARFILZOMIB
     Dosage: UNK
     Route: 042
  3. LENALIDOMIDE [Suspect]
     Active Substance: LENALIDOMIDE
     Indication: Plasma cell myeloma
     Dosage: 525 MILLIGRAM
     Route: 065
     Dates: start: 20210119
  4. DEXAMETHASONE [Concomitant]
     Active Substance: DEXAMETHASONE
     Indication: Plasma cell myeloma
     Dosage: 20 MILLIGRAM
     Dates: start: 20210203
  5. CALCIUM CARBONATE\CHOLECALCIFEROL [Concomitant]
     Active Substance: CALCIUM CARBONATE\CHOLECALCIFEROL
     Dosage: 1 UNK
     Dates: start: 20201222
  6. FOLIC ACID [Concomitant]
     Active Substance: FOLIC ACID
     Dosage: 1 UNK
     Dates: start: 20180404
  7. MAXICLAN DUO [Concomitant]
     Dosage: 625 MILLIGRAM
     Dates: start: 20201229, end: 20210511
  8. MEGACE [Concomitant]
     Active Substance: MEGESTROL ACETATE
     Dosage: 10 MILLILITER
     Dates: start: 20201118
  9. ASPIRIN [Concomitant]
     Active Substance: ASPIRIN
     Dosage: 100 MILLIGRAM
     Dates: start: 20201208
  10. COSCA [Concomitant]
     Dosage: 50 MILLIGRAM
     Dates: start: 20190802
  11. POTASSIUM CHLORIDE [Concomitant]
     Active Substance: POTASSIUM CHLORIDE
     Dosage: 1-2 UNK
     Dates: start: 20210216, end: 20210227
  12. ZOLENIC [Concomitant]
     Dosage: 1 UNK
     Dates: start: 20210226, end: 20210226
  13. LEVOFLOXACIN [Concomitant]
     Active Substance: LEVOFLOXACIN
     Dosage: 750 MILLIGRAM
     Dates: start: 20201218
  14. MAXICLAN [AMOXICILLIN;CLAVULANATE POTASSIUM] [Concomitant]
     Dosage: 625 MILLIGRAM
     Dates: start: 20201229, end: 20210511
  15. VIVACOR [CARVEDILOL] [Concomitant]
     Dosage: 5 MILLIGRAM
     Dates: start: 20180419
  16. LEVOFLOXACIN [Concomitant]
     Active Substance: LEVOFLOXACIN
     Dosage: 1 UNK
     Dates: start: 20201209
  17. ZOYLEX [ACICLOVIR] [Concomitant]
     Dosage: 400 MILLIGRAM
     Dates: start: 20180713
  18. LANSOPRAZOLE [Concomitant]
     Active Substance: LANSOPRAZOLE
     Dosage: 15 MILLIGRAM
     Dates: start: 20180605
  19. DIFLUCAN [Concomitant]
     Active Substance: FLUCONAZOLE
     Dosage: 35 MILLILITER
     Dates: start: 20180605, end: 20210315
  20. PREDNISOLONE [Concomitant]
     Active Substance: PREDNISOLONE
     Dosage: 2.5-5 MILLIGRAM
     Dates: start: 20210217, end: 20210317

REACTIONS (1)
  - Pancytopenia [Recovered/Resolved]

NARRATIVE: CASE EVENT DATE: 20210305
